FAERS Safety Report 11884874 (Version 1)
Quarter: 2015Q4

REPORT INFORMATION
  Report Type: Spontaneous
  Country: US (occurrence: None)
  Receive Date: 20151231
  Receipt Date: 20151231
  Transmission Date: 20160305
  Serious: Yes (Life-Threatening, Other)
  Sender: FDA-Public Use
  Company Number: None

PATIENT
  Age: 82 Year
  Sex: Female
  Weight: 54.43 kg

DRUGS (9)
  1. CELECOXIB. [Concomitant]
     Active Substance: CELECOXIB
  2. SIMVASTATIN. [Concomitant]
     Active Substance: SIMVASTATIN
  3. COLCRYS .6MG GENERIC [Suspect]
     Active Substance: COLCHICINE
     Indication: GOUT
     Route: 048
  4. TELMISARTAN. [Concomitant]
     Active Substance: TELMISARTAN
  5. LYRICA [Concomitant]
     Active Substance: PREGABALIN
  6. ZYRTEC [Concomitant]
     Active Substance: CETIRIZINE HYDROCHLORIDE
  7. GLUCOSAMINE/CHONDROITIN /08437701/ [Concomitant]
     Active Substance: CHONDROITIN SULFATE (BOVINE)\GLUCOSAMINE SULFATE
  8. JANUMET [Concomitant]
     Active Substance: METFORMIN HYDROCHLORIDE\SITAGLIPTIN PHOSPHATE
  9. OCUVITE [Concomitant]
     Active Substance: VITAMINS

REACTIONS (1)
  - Pruritus generalised [None]

NARRATIVE: CASE EVENT DATE: 20151230
